FAERS Safety Report 8912609 (Version 1)
Quarter: 2012Q4

REPORT INFORMATION
  Report Type: 
  Country: US (occurrence: US)
  Receive Date: 20121115
  Receipt Date: 20121115
  Transmission Date: 20130627
  Serious: No
  Sender: FDA-Public Use
  Company Number: US-PFIZER INC-2012285776

PATIENT
  Sex: Female

DRUGS (2)
  1. LYRICA [Suspect]
     Indication: NERVE PAIN
     Dosage: UNK
  2. LYRICA [Suspect]
     Indication: SHINGLES

REACTIONS (4)
  - Drug ineffective [Unknown]
  - Somnolence [Unknown]
  - Dry mouth [Unknown]
  - Vision blurred [Unknown]
